FAERS Safety Report 18298479 (Version 8)
Quarter: 2022Q1

REPORT INFORMATION
  Report Type: Spontaneous
  Country: US (occurrence: US)
  Receive Date: 20200922
  Receipt Date: 20220216
  Transmission Date: 20220424
  Serious: Yes (Other)
  Sender: FDA-Public Use
  Company Number: US-PFIZER INC-2017465014

PATIENT
  Age: 32 Year
  Sex: Male

DRUGS (13)
  1. XYNTHA [Suspect]
     Active Substance: ANTIHEMOPHILIC FACTOR, HUMAN RECOMBINANT RESIDUES 743-1636 DELETED
     Indication: Factor VIII deficiency
     Dosage: INFUSE 2170 UNITS (+/-10% AS NEEDED FOR MILD BLEEDS, INFUSE 4340 UNITS (+/-10%)
     Route: 042
     Dates: start: 201902
  2. XYNTHA [Suspect]
     Active Substance: ANTIHEMOPHILIC FACTOR, HUMAN RECOMBINANT RESIDUES 743-1636 DELETED
     Dosage: INFUSE 2170 UNITS (+/-10%)
     Route: 042
  3. XYNTHA [Suspect]
     Active Substance: ANTIHEMOPHILIC FACTOR, HUMAN RECOMBINANT RESIDUES 743-1636 DELETED
     Dosage: INFUSE 2170 UNITS (+/-10%) INTRAVENOUSLY AS NEEDED MILD BLEEDS; AND INFUSE 4340 UNITS (+/-10%) IN
     Route: 042
  4. XYNTHA [Suspect]
     Active Substance: ANTIHEMOPHILIC FACTOR, HUMAN RECOMBINANT RESIDUES 743-1636 DELETED
     Dosage: 2170 UNITS (+/-10%) INTRAVENOUSLY AS NEEDED MILD BLEEDS; AND INFUSE 4340 UNITS (+/-10%) IN
     Route: 042
  5. XYNTHA [Suspect]
     Active Substance: ANTIHEMOPHILIC FACTOR, HUMAN RECOMBINANT RESIDUES 743-1636 DELETED
     Dosage: INFUSE 2170 UNITS (+/-10%) INTRAVENOUSLY AS NEEDED MILD BLEEDS; AND INFUSE 4340 UNITS (+/-10%) INT
     Route: 042
  6. XYNTHA [Suspect]
     Active Substance: ANTIHEMOPHILIC FACTOR, HUMAN RECOMBINANT RESIDUES 743-1636 DELETED
     Dosage: INFUSE 2170 UNITS (+/-10%) INTRAVENOUSLY AS NEEDED MILD BLEEDS; AND INFUSE 4340 UNITS (+/-10%) INT
     Route: 042
  7. HEMLIBRA [Concomitant]
     Active Substance: EMICIZUMAB-KXWH
     Dosage: 180 MG, WEEKLY
     Route: 058
     Dates: start: 20200920
  8. OMEPRAZOLE [Concomitant]
     Active Substance: OMEPRAZOLE
     Dosage: UNK
  9. MELOXICAM [Concomitant]
     Active Substance: MELOXICAM
     Dosage: UNK
  10. LYRICA [Concomitant]
     Active Substance: PREGABALIN
     Dosage: UNK
  11. VALSARTAN [Concomitant]
     Active Substance: VALSARTAN
     Dosage: UNK
  12. PEPCID AC [Concomitant]
     Active Substance: FAMOTIDINE
     Dosage: UNK
  13. HEMLIBRA [Concomitant]
     Active Substance: EMICIZUMAB-KXWH
     Dosage: UNK

REACTIONS (8)
  - Haemarthrosis [Unknown]
  - Haemarthrosis [Unknown]
  - Haemarthrosis [Unknown]
  - Haemorrhage [Unknown]
  - Haemorrhage [Unknown]
  - Haemorrhage [Unknown]
  - Haemorrhage [Unknown]
  - Fall [Unknown]
